FAERS Safety Report 23511834 (Version 1)
Quarter: 2024Q1

REPORT INFORMATION
  Report Type: Spontaneous
  Country: US (occurrence: US)
  Receive Date: 20240212
  Receipt Date: 20240212
  Transmission Date: 20240410
  Serious: Yes (Other)
  Sender: FDA-Public Use
  Company Number: US-GSKCCFUS-Case-01930776_AE-107378

PATIENT

DRUGS (1)
  1. ANORO ELLIPTA [Suspect]
     Active Substance: UMECLIDINIUM BROMIDE\VILANTEROL TRIFENATATE
     Indication: Product used for unknown indication
     Dosage: UNK, 2.5 MONTHS

REACTIONS (8)
  - Glaucoma [Recovered/Resolved]
  - Asthma [Recovered/Resolved]
  - Rhinorrhoea [Recovered/Resolved]
  - Lethargy [Recovered/Resolved]
  - Hypokinesia [Recovered/Resolved]
  - Pain in extremity [Recovered/Resolved]
  - Constipation [Recovered/Resolved]
  - Neck pain [Recovered/Resolved]
